FAERS Safety Report 11151377 (Version 1)
Quarter: 2015Q2

REPORT INFORMATION
  Report Type: Report from Study
  Country: MX (occurrence: MX)
  Receive Date: 20150601
  Receipt Date: 20150601
  Transmission Date: 20150821
  Serious: Yes (Death, Other)
  Sender: FDA-Public Use
  Company Number: MX-SA-2015SA072708

PATIENT
  Sex: Male

DRUGS (2)
  1. LANTUS SOLOSTAR [Suspect]
     Active Substance: INSULIN GLARGINE
     Route: 058
     Dates: start: 20150428, end: 20150428
  2. SOLOSTAR [Concomitant]
     Active Substance: DEVICE
     Route: 058
     Dates: start: 20150428, end: 20150428

REACTIONS (1)
  - Death [Fatal]

NARRATIVE: CASE EVENT DATE: 20150429
